FAERS Safety Report 26093748 (Version 2)
Quarter: 2025Q4

REPORT INFORMATION
  Report Type: Spontaneous
  Country: MX (occurrence: MX)
  Receive Date: 20251126
  Receipt Date: 20251205
  Transmission Date: 20260118
  Serious: No
  Sender: GUERBET
  Company Number: MX-GUERBET / JUAMA S.A. DE C.V-MX-20250037

PATIENT
  Age: 80 Year
  Sex: Female
  Weight: 42 kg

DRUGS (4)
  1. OPTIRAY 320 [Suspect]
     Active Substance: IOVERSOL
     Indication: Computerised tomogram thorax
     Route: 042
     Dates: start: 20251106, end: 20251106
  2. OPTIRAY 320 [Suspect]
     Active Substance: IOVERSOL
     Indication: Computerised tomogram neck
  3. OPTIRAY 320 [Suspect]
     Active Substance: IOVERSOL
     Indication: Computerised tomogram head
  4. DIOSMIN [Concomitant]
     Active Substance: DIOSMIN
     Indication: Product used for unknown indication
     Route: 048
     Dates: start: 2011, end: 20251001

REACTIONS (6)
  - Parophthalmia [Recovered/Resolved]
  - Macule [Recovered/Resolved]
  - Skin lesion [Recovered/Resolved]
  - Erythema [Recovered/Resolved]
  - Pruritus [Recovered/Resolved]
  - Hypersensitivity [Recovered/Resolved]

NARRATIVE: CASE EVENT DATE: 20251106
